FAERS Safety Report 5524805-9 (Version None)
Quarter: 2007Q4

REPORT INFORMATION
  Report Type: 
  Country: None (occurrence: None)
  Receive Date: 20071116
  Receipt Date: 20071105
  Transmission Date: 20080405
  Serious: Yes (Other)
  Sender: FDA-Public Use
  Company Number: B0494936A

PATIENT

DRUGS (4)
  1. LAMOTRIGINE [Suspect]
  2. LEVETIRACETAM [Suspect]
  3. CLOBAZAM (FORMULATION UNKNOWN) (CLOBAZAM) [Suspect]
  4. HYPERICUM (FORMULATION UNKNOWN) (HYPERICUM) [Suspect]

REACTIONS (3)
  - CONDITION AGGRAVATED [None]
  - CONVULSION [None]
  - DRUG INTERACTION [None]
